FAERS Safety Report 4893438-X (Version None)
Quarter: 2006Q1

REPORT INFORMATION
  Report Type: 
  Country: None (occurrence: None)
  Receive Date: 20060125
  Receipt Date: 20060125
  Transmission Date: 20060701
  Serious: Yes (Hospitalization, Other)
  Sender: FDA-Public Use
  Company Number: None

PATIENT
  Sex: Female
  Weight: 63.7 kg

DRUGS (2)
  1. CISPLATIN [Suspect]
     Indication: NEOPLASM MALIGNANT
     Dosage: SEE IMAGE
     Dates: start: 20051123, end: 20051201
  2. CISPLATIN [Suspect]
     Indication: NEOPLASM MALIGNANT
     Dosage: SEE IMAGE
     Dates: start: 20051123

REACTIONS (5)
  - DYSPNOEA [None]
  - LARYNGEAL DISORDER [None]
  - OBSTRUCTIVE AIRWAYS DISORDER [None]
  - RADIATION INJURY [None]
  - STRIDOR [None]
